FAERS Safety Report 19082547 (Version 1)
Quarter: 2021Q1

REPORT INFORMATION
  Report Type: Spontaneous
  Country: US (occurrence: US)
  Receive Date: 20210331
  Receipt Date: 20210331
  Transmission Date: 20210420
  Serious: No
  Sender: FDA-Public Use
  Company Number: None

PATIENT
  Age: 59 Year
  Sex: Male

DRUGS (1)
  1. LOSARTAN. [Suspect]
     Active Substance: LOSARTAN
     Indication: HYPERTENSION
     Dates: start: 20200513, end: 20201221

REACTIONS (3)
  - Dysphagia [None]
  - Adverse drug reaction [None]
  - Angioedema [None]

NARRATIVE: CASE EVENT DATE: 20201221
